FAERS Safety Report 9697070 (Version 1)
Quarter: 2013Q4

REPORT INFORMATION
  Report Type: Spontaneous
  Country: IT (occurrence: IT)
  Receive Date: 20131120
  Receipt Date: 20131120
  Transmission Date: 20140711
  Serious: Yes (Other)
  Sender: FDA-Public Use
  Company Number: IT-ROCHE-1304877

PATIENT
  Age: 36 Year
  Sex: Male

DRUGS (4)
  1. PEG-INTERFERON ALFA 2A [Suspect]
     Indication: CHRONIC HEPATITIS C
     Route: 065
  2. RIBAVIRIN [Interacting]
     Indication: CHRONIC HEPATITIS C
     Route: 065
  3. TELAPREVIR [Interacting]
     Indication: CHRONIC HEPATITIS C
     Route: 065
  4. ESCITALOPRAM [Concomitant]
     Route: 065

REACTIONS (2)
  - Convulsion [Recovered/Resolved]
  - Drug interaction [Unknown]
